FAERS Safety Report 13040303 (Version 1)
Quarter: 2016Q4

REPORT INFORMATION
  Report Type: Spontaneous
  Country: US (occurrence: US)
  Receive Date: 20161217
  Receipt Date: 20161217
  Transmission Date: 20170207
  Serious: Yes (Hospitalization)
  Sender: FDA-Public Use
  Company Number: None

PATIENT
  Age: 52 Year
  Sex: Male
  Weight: 60.9 kg

DRUGS (1)
  1. ERBITUX [Suspect]
     Active Substance: CETUXIMAB
     Dates: end: 20120608

REACTIONS (4)
  - Radiation injury [None]
  - Weight decreased [None]
  - Dysphagia [None]
  - Hyperthyroidism [None]

NARRATIVE: CASE EVENT DATE: 20161101
